FAERS Safety Report 7879488-X (Version None)
Quarter: 2011Q4

REPORT INFORMATION
  Report Type: 
  Country: None (occurrence: None)
  Receive Date: 20111101
  Receipt Date: 20110427
  Transmission Date: 20120403
  Serious: No
  Sender: FDA-Public Use
  Company Number: US-ABBOTT-11P-163-0722572-00

PATIENT
  Sex: Male
  Weight: 83.99 kg

DRUGS (6)
  1. TOPROL-XL [Concomitant]
     Indication: CARDIAC DISORDER
  2. BIAXIN [Suspect]
     Dates: start: 20110425
  3. LEVEMIR [Concomitant]
     Indication: DIABETES MELLITUS
     Dosage: 52 UNITS QAM 27 UNITS QPM
  4. ZEGERID [Concomitant]
     Indication: PRODUCT USED FOR UNKNOWN INDICATION
  5. BIAXIN [Suspect]
     Indication: SINUSITIS
  6. PROCARDIA [Concomitant]
     Indication: CARDIAC DISORDER

REACTIONS (1)
  - HYPOGLYCAEMIA [None]
